FAERS Safety Report 9315066 (Version 1)
Quarter: 2013Q2

REPORT INFORMATION
  Report Type: Spontaneous
  Country: US (occurrence: US)
  Receive Date: 20130529
  Receipt Date: 20130529
  Transmission Date: 20140414
  Serious: Yes (Other)
  Sender: FDA-Public Use
  Company Number: US-ELI_LILLY_AND_COMPANY-US201305007102

PATIENT
  Sex: Male

DRUGS (8)
  1. ADCIRCA [Suspect]
  2. REVLIMID [Concomitant]
     Indication: PLASMA CELL MYELOMA
     Dosage: 25 MG, UNK
     Route: 048
     Dates: start: 201304
  3. ZOMETA [Concomitant]
  4. ANDROGEL [Concomitant]
  5. BIAXIN [Concomitant]
  6. CENTRUM SILVER [Concomitant]
  7. XALATAN [Concomitant]
  8. DEXAMETHASONE [Concomitant]

REACTIONS (2)
  - Pain in extremity [Recovered/Resolved]
  - Fatigue [Recovered/Resolved]
